FAERS Safety Report 20979436 (Version 3)
Quarter: 2022Q3

REPORT INFORMATION
  Report Type: Spontaneous
  Country: BE (occurrence: BE)
  Receive Date: 20220620
  Receipt Date: 20220720
  Transmission Date: 20221027
  Serious: Yes (Hospitalization)
  Sender: FDA-Public Use
  Company Number: US-NOVARTISPH-NVSC2022BE137109

PATIENT
  Age: 50 Year
  Sex: Female
  Weight: 66 kg

DRUGS (17)
  1. ANASTROZOLE [Suspect]
     Active Substance: ANASTROZOLE
     Indication: Invasive ductal breast carcinoma
     Dosage: 1 MG, QD
     Route: 048
     Dates: start: 20190318, end: 20210114
  2. ANASTROZOLE [Suspect]
     Active Substance: ANASTROZOLE
     Dosage: UNK
     Route: 065
     Dates: start: 20210115
  3. LETROZOLE [Suspect]
     Active Substance: LETROZOLE
     Indication: Invasive ductal breast carcinoma
     Dosage: 2.5 MG, QD
     Route: 065
     Dates: start: 20181220, end: 20190318
  4. GOSERELIN [Suspect]
     Active Substance: GOSERELIN
     Indication: Invasive ductal breast carcinoma
     Dosage: 3.6 MG, Q4W
     Route: 058
     Dates: start: 20181220, end: 20210114
  5. GOSERELIN [Suspect]
     Active Substance: GOSERELIN
     Dosage: UNK
     Route: 065
     Dates: start: 20210115, end: 20210525
  6. PERINDOPRIL [Concomitant]
     Active Substance: PERINDOPRIL
     Indication: Hypertension
     Dosage: UNK
     Route: 065
     Dates: start: 20190901
  7. LYRICA [Concomitant]
     Active Substance: PREGABALIN
     Indication: Breast fibrosis
     Dosage: UNK
     Route: 065
     Dates: start: 20190926
  8. DICLOFENAC [Concomitant]
     Active Substance: DICLOFENAC
     Indication: Rib fracture
     Dosage: UNK
     Route: 065
     Dates: start: 20191024
  9. DICLOFENAC [Concomitant]
     Active Substance: DICLOFENAC
     Indication: Hernia pain
  10. TRAZODONE [Concomitant]
     Active Substance: TRAZODONE HYDROCHLORIDE
     Indication: Product used for unknown indication
     Dosage: UNK
     Route: 065
     Dates: start: 20191218
  11. DEXPANTHENOL [Concomitant]
     Active Substance: DEXPANTHENOL
     Indication: Androgenetic alopecia
     Dosage: UNK
     Route: 065
     Dates: start: 20210218
  12. BIOTIN [Concomitant]
     Active Substance: BIOTIN
     Indication: Androgenetic alopecia
     Dosage: UNK
     Route: 065
     Dates: start: 20210218
  13. ALOPEXY [Concomitant]
     Indication: Androgenetic alopecia
     Dosage: UNK
     Route: 065
     Dates: start: 20210218
  14. LEVOTHYROXINE [Concomitant]
     Active Substance: LEVOTHYROXINE
     Indication: Goitre
     Dosage: UNK
     Route: 065
     Dates: start: 201001
  15. VENLAFAXINE [Concomitant]
     Active Substance: VENLAFAXINE HYDROCHLORIDE
     Indication: Anxiety
     Dosage: UNK
     Route: 065
     Dates: start: 2015
  16. XANAX [Concomitant]
     Active Substance: ALPRAZOLAM
     Indication: Anxiety
     Dosage: UNK
     Route: 065
     Dates: start: 2010
  17. BLISSEL [Concomitant]
     Indication: Atrophic vulvovaginitis
     Dosage: UNK
     Route: 065
     Dates: start: 20181220

REACTIONS (2)
  - Arthralgia [Recovered/Resolved]
  - Affective disorder [Unknown]

NARRATIVE: CASE EVENT DATE: 20190318
